FAERS Safety Report 25260655 (Version 1)
Quarter: 2025Q2

REPORT INFORMATION
  Report Type: Spontaneous
  Country: CN (occurrence: CN)
  Receive Date: 20250501
  Receipt Date: 20250501
  Transmission Date: 20250716
  Serious: Yes (Life-Threatening, Hospitalization)
  Sender: NOVO NORDISK
  Company Number: None

PATIENT
  Age: 30 Year
  Sex: Female
  Weight: 85.75 kg

DRUGS (6)
  1. LEVEMIR [Suspect]
     Active Substance: INSULIN DETEMIR
     Indication: Diabetes complicating pregnancy
     Dosage: 10 IU, QD
     Route: 058
     Dates: start: 20250110, end: 20250320
  2. LEVEMIR [Suspect]
     Active Substance: INSULIN DETEMIR
     Dosage: 10 IU, QD
     Route: 058
     Dates: start: 20250321, end: 20250402
  3. NOVORAPID [Suspect]
     Active Substance: INSULIN ASPART
     Indication: Diabetes complicating pregnancy
     Dosage: 6 IU, QD
     Route: 058
     Dates: start: 20250110, end: 20250320
  4. NOVORAPID [Suspect]
     Active Substance: INSULIN ASPART
     Dosage: 10 IU, QD
     Route: 058
     Dates: start: 20250321, end: 20250402
  5. METFORMIN [Concomitant]
     Active Substance: METFORMIN HYDROCHLORIDE
     Route: 048
  6. METFORMIN [Concomitant]
     Active Substance: METFORMIN HYDROCHLORIDE
     Dosage: 0.5 G, BID
     Route: 048
     Dates: start: 20250404

REACTIONS (13)
  - Loss of consciousness [Recovering/Resolving]
  - Rash pruritic [Recovering/Resolving]
  - Anaphylactic shock [Recovering/Resolving]
  - Sensation of foreign body [Recovering/Resolving]
  - Dizziness [Recovering/Resolving]
  - Hypoaesthesia [Recovering/Resolving]
  - Swelling face [Recovering/Resolving]
  - Peripheral swelling [Recovering/Resolving]
  - Injection site rash [Recovering/Resolving]
  - Injection site erythema [Recovering/Resolving]
  - Rash erythematous [Recovering/Resolving]
  - Prurigo [Recovering/Resolving]
  - Maternal exposure during pregnancy [Unknown]

NARRATIVE: CASE EVENT DATE: 20250101
